FAERS Safety Report 14123952 (Version 1)
Quarter: 2017Q4

REPORT INFORMATION
  Report Type: Spontaneous
  Country: RO (occurrence: RO)
  Receive Date: 20171025
  Receipt Date: 20171025
  Transmission Date: 20180321
  Serious: Yes (Hospitalization, Other)
  Sender: FDA-Public Use
  Company Number: RO-ABBVIE-17S-135-2140031-00

PATIENT
  Age: 69 Year
  Sex: Female

DRUGS (12)
  1. EUTHYROX [Concomitant]
     Active Substance: LEVOTHYROXINE SODIUM
     Indication: HYPOTHYROIDISM
     Route: 048
  2. VIEKIRAX [Suspect]
     Active Substance: OMBITASVIR\PARITAPREVIR\RITONAVIR
     Indication: HEPATIC CIRRHOSIS
  3. CORYOL [Concomitant]
     Active Substance: CARVEDILOL
     Indication: CARDIAC DISORDER
     Route: 048
  4. EXVIERA [Suspect]
     Active Substance: DASABUVIR
     Indication: HEPATIC CIRRHOSIS
  5. DIUREX [Concomitant]
     Active Substance: AMILORIDE HYDROCHLORIDE\HYDROCHLOROTHIAZIDE
     Indication: CARDIAC DISORDER
     Route: 048
  6. SINTROM [Concomitant]
     Active Substance: ACENOCOUMAROL
     Indication: CARDIAC DISORDER
     Route: 048
  7. VIEKIRAX [Suspect]
     Active Substance: OMBITASVIR\PARITAPREVIR\RITONAVIR
     Indication: HEPATITIS C
     Route: 048
     Dates: start: 20170718, end: 20170908
  8. DIGOXIN. [Concomitant]
     Active Substance: DIGOXIN
     Indication: CARDIAC DISORDER
     Route: 048
  9. TRITACE [Concomitant]
     Active Substance: RAMIPRIL
     Indication: CARDIAC DISORDER
     Route: 048
  10. SINTROM [Concomitant]
     Active Substance: ACENOCOUMAROL
     Indication: DEVICE OCCLUSION
  11. MIOFILIN [Concomitant]
     Indication: PRODUCT USED FOR UNKNOWN INDICATION
  12. EXVIERA [Suspect]
     Active Substance: DASABUVIR
     Indication: HEPATITIS C
     Route: 048
     Dates: start: 20170717, end: 20170908

REACTIONS (6)
  - Dyspnoea [Unknown]
  - Mitral valve stenosis [Unknown]
  - General physical health deterioration [Unknown]
  - Device occlusion [Recovering/Resolving]
  - Orthopnoea [Unknown]
  - Acute pulmonary oedema [Recovered/Resolved]

NARRATIVE: CASE EVENT DATE: 201709
